FAERS Safety Report 5453427-3 (Version None)
Quarter: 2007Q3

REPORT INFORMATION
  Report Type: 
  Country: None (occurrence: None)
  Receive Date: 20070913
  Receipt Date: 20070828
  Transmission Date: 20080115
  Serious: Yes (Other)
  Sender: FDA-Public Use
  Company Number: DSA_30502_2007

PATIENT
  Sex: Female

DRUGS (5)
  1. VASOTEC [Suspect]
     Indication: HYPERTENSION
     Dosage: (5 MG QID ORAL)
     Route: 048
     Dates: start: 20070825, end: 20070826
  2. VASOTEC [Suspect]
     Indication: HYPERTENSION
     Dosage: (5 MG QID ORAL)
     Route: 048
     Dates: start: 19980101, end: 20070824
  3. DYAZIDE [Concomitant]
  4. CATAPRES [Concomitant]
  5. NORVASC [Concomitant]

REACTIONS (5)
  - BLOOD PRESSURE INCREASED [None]
  - DRUG INEFFECTIVE [None]
  - NERVOUSNESS [None]
  - PALPITATIONS [None]
  - PHARMACEUTICAL PRODUCT COMPLAINT [None]
